FAERS Safety Report 18207959 (Version 1)
Quarter: 2020Q3

REPORT INFORMATION
  Report Type: Spontaneous
  Country: US (occurrence: US)
  Receive Date: 20200828
  Receipt Date: 20200828
  Transmission Date: 20201103
  Serious: Yes (Life-Threatening, Hospitalization)
  Sender: FDA-Public Use
  Company Number: US-MYLANLABS-2020M1074277

PATIENT
  Age: 57 Year
  Sex: Male

DRUGS (2)
  1. NOREPINEPHRINE. [Suspect]
     Active Substance: NOREPINEPHRINE
     Indication: VASOPRESSIVE THERAPY
     Dosage: RECEIVED AT LOW?DOSE: 0.03 MG/KG/MIN.
  2. PROPOFOL. [Suspect]
     Active Substance: PROPOFOL
     Indication: SEDATIVE THERAPY
     Dosage: RECEIVED AVERAGE DOSE: 50 MICROG/KG/MIN

REACTIONS (10)
  - Arrhythmia supraventricular [Recovering/Resolving]
  - Alanine aminotransferase increased [Recovering/Resolving]
  - Hyperkalaemia [Recovering/Resolving]
  - Aspartate aminotransferase increased [Recovering/Resolving]
  - Propofol infusion syndrome [Recovering/Resolving]
  - Acute kidney injury [Recovering/Resolving]
  - Ventricular arrhythmia [Recovering/Resolving]
  - Lactic acidosis [Recovering/Resolving]
  - Hypertriglyceridaemia [Recovering/Resolving]
  - Metabolic acidosis [Recovering/Resolving]
